FAERS Safety Report 26043200 (Version 1)
Quarter: 2025Q4

REPORT INFORMATION
  Report Type: Spontaneous
  Country: EU (occurrence: EU)
  Receive Date: 20251113
  Receipt Date: 20251113
  Transmission Date: 20260117
  Serious: Yes (Hospitalization, Other)
  Sender: BAUSCH AND LOMB
  Company Number: EU-KRKA-DE2025K19907SPO

PATIENT
  Age: 34 Year
  Sex: Male
  Weight: 65 kg

DRUGS (7)
  1. VENLAFAXINE [Suspect]
     Active Substance: VENLAFAXINE HYDROCHLORIDE
     Indication: Product used for unknown indication
     Route: 048
     Dates: start: 20251029, end: 20251029
  2. SITAGLIPTIN [Suspect]
     Active Substance: SITAGLIPTIN
     Indication: Product used for unknown indication
     Dosage: UP TO 1500 MG, TOTAL
     Route: 048
     Dates: start: 20251029, end: 20251029
  3. ACETAMINOPHEN\TRAMADOL [Suspect]
     Active Substance: ACETAMINOPHEN\TRAMADOL
     Indication: Product used for unknown indication
     Dosage: UP TO 10 DOSAGE FORM, TOTAL
     Route: 048
     Dates: start: 20251029, end: 20251029
  4. ACETAMINOPHEN [Suspect]
     Active Substance: ACETAMINOPHEN
     Indication: Product used for unknown indication
     Dosage: UP TO 5000 UNK, TOTAL
     Route: 048
     Dates: start: 20251029, end: 20251029
  5. IBUPROFEN [Suspect]
     Active Substance: IBUPROFEN
     Indication: Product used for unknown indication
     Dosage: UP TO 8000 MG, TOTAL
     Route: 048
     Dates: start: 20251029, end: 20251029
  6. IBUPROFEN [Suspect]
     Active Substance: IBUPROFEN
     Dosage: UP TO 4000 MG, TOTAL
     Route: 048
     Dates: start: 20251029, end: 20251029
  7. MELOXICAM [Suspect]
     Active Substance: MELOXICAM
     Indication: Product used for unknown indication
     Dosage: UP TO 75 MG, TOTAL
     Route: 048
     Dates: start: 20251029, end: 20251029

REACTIONS (3)
  - Tachycardia [Recovered/Resolved]
  - Suicide attempt [Recovered/Resolved]
  - Intentional overdose [Recovered/Resolved]

NARRATIVE: CASE EVENT DATE: 20251029
